FAERS Safety Report 17842198 (Version 11)
Quarter: 2020Q3

REPORT INFORMATION
  Report Type: Spontaneous
  Country: PL (occurrence: PL)
  Receive Date: 20200529
  Receipt Date: 20200805
  Transmission Date: 20201103
  Serious: Yes (Disabling, Other)
  Sender: FDA-Public Use
  Company Number: PL-UCBSA-2020021826

PATIENT
  Age: 22 Year
  Sex: Female

DRUGS (12)
  1. LACOSAMIDE. [Suspect]
     Active Substance: LACOSAMIDE
     Indication: EPILEPSY
     Dosage: GRADUALLY UP TO A DOSE OF 300 MG A DAY
  2. LAMOTRIGINE. [Interacting]
     Active Substance: LAMOTRIGINE
     Indication: EPILEPSY
     Dosage: 200 MILLIGRAM PER DAY
  3. LACOSAMIDE. [Interacting]
     Active Substance: LACOSAMIDE
     Indication: PARTIAL SEIZURES WITH SECONDARY GENERALISATION
     Dosage: 450 MILLIGRAM PER DAY
  4. LACOSAMIDE. [Interacting]
     Active Substance: LACOSAMIDE
     Indication: SEIZURE
  5. LEVETIRACETAM. [Suspect]
     Active Substance: LEVETIRACETAM
     Indication: SEIZURE
     Dosage: 2500 MILLIGRAM PER DAY
  6. LAMOTRIGINE. [Interacting]
     Active Substance: LAMOTRIGINE
     Indication: PARTIAL SEIZURES WITH SECONDARY GENERALISATION
     Dosage: 300 MILLIGRAM PER DAY
  7. SERTRALINE [Suspect]
     Active Substance: SERTRALINE HYDROCHLORIDE
     Indication: DEPRESSION
     Dosage: 50 MILLIGRAM PER DAY IN THE MORNING
  8. LACOSAMIDE. [Interacting]
     Active Substance: LACOSAMIDE
     Indication: AUTOMATISM EPILEPTIC
     Dosage: 500 MILLIGRAM PER DAY
  9. LEVETIRACETAM. [Suspect]
     Active Substance: LEVETIRACETAM
     Indication: EPILEPSY
     Dosage: 1500 MILLIGRAM PER DAY
  10. LAMOTRIGINE. [Interacting]
     Active Substance: LAMOTRIGINE
     Indication: SEIZURE
  11. SERTRALINE [Suspect]
     Active Substance: SERTRALINE HYDROCHLORIDE
     Indication: DEPRESSED MOOD
  12. LAMOTRIGINE. [Interacting]
     Active Substance: LAMOTRIGINE
     Indication: AUTOMATISM EPILEPTIC
     Dosage: 250 MILLIGRAM PER DAY

REACTIONS (8)
  - Diplopia [Unknown]
  - Dizziness [Unknown]
  - Drug interaction [Recovered/Resolved]
  - Neurotoxicity [Recovered/Resolved]
  - Therapeutic product effect incomplete [Unknown]
  - Seizure [Recovering/Resolving]
  - Off label use [Unknown]
  - Depressed mood [Unknown]
